FAERS Safety Report 23249730 (Version 2)
Quarter: 2024Q1

REPORT INFORMATION
  Report Type: Spontaneous
  Country: FR (occurrence: FR)
  Receive Date: 20231201
  Receipt Date: 20240204
  Transmission Date: 20240410
  Serious: Yes (Other)
  Sender: FDA-Public Use
  Company Number: FR-JNJFOC-20230842284

PATIENT

DRUGS (3)
  1. ERDAFITINIB [Suspect]
     Active Substance: ERDAFITINIB
     Indication: Product used for unknown indication
     Dosage: DECIDED TO REDUCE DOSAGE OF ERDAFITINIB AT 6 MG/DAY FOR THE NEXT MONTH.
     Route: 065
  2. ERDAFITINIB [Suspect]
     Active Substance: ERDAFITINIB
     Route: 065
  3. ERDAFITINIB [Suspect]
     Active Substance: ERDAFITINIB
     Dosage: DECIDED TO REDUCE DOSAGE OF ERDAFITINIB AT 4 MG/DAY.
     Route: 065
     Dates: start: 20230929

REACTIONS (2)
  - Mucosal inflammation [Unknown]
  - Aphthous ulcer [Unknown]

NARRATIVE: CASE EVENT DATE: 20231001
